FAERS Safety Report 6888772-8 (Version None)
Quarter: 2010Q3

REPORT INFORMATION
  Report Type: 
  Country: None (occurrence: None)
  Receive Date: 20100730
  Receipt Date: 20071101
  Transmission Date: 20110219
  Serious: No
  Sender: FDA-Public Use
  Company Number: US-PFIZER INC-2007092527

PATIENT
  Sex: Male
  Weight: 65.909 kg

DRUGS (7)
  1. LIPITOR [Suspect]
     Indication: BLOOD CHOLESTEROL INCREASED
  2. ZETIA [Concomitant]
  3. OMEPRAZOLE [Concomitant]
  4. BENICAR [Concomitant]
  5. LEVOTHYROXINE SODIUM [Concomitant]
  6. METOPROLOL TARTRATE [Concomitant]
  7. ASPIRINE [Concomitant]

REACTIONS (1)
  - AMNESIA [None]
